FAERS Safety Report 17273173 (Version 3)
Quarter: 2020Q2

REPORT INFORMATION
  Report Type: Report from Study
  Country: US (occurrence: US)
  Receive Date: 20200115
  Receipt Date: 20200612
  Transmission Date: 20200713
  Serious: No
  Sender: FDA-Public Use
  Company Number: NVSC2020US008495

PATIENT

DRUGS (1)
  1. MAYZENT [Suspect]
     Active Substance: SIPONIMOD
     Indication: MULTIPLE SCLEROSIS
     Dosage: 2 MG, CAPSULE
     Route: 048
     Dates: start: 20200113

REACTIONS (2)
  - Visual impairment [Unknown]
  - Gait disturbance [Unknown]
